FAERS Safety Report 5352147-3 (Version None)
Quarter: 2007Q2

REPORT INFORMATION
  Report Type: 
  Country: None (occurrence: None)
  Receive Date: 20070611
  Receipt Date: 20070606
  Transmission Date: 20071010
  Serious: Yes (Hospitalization)
  Sender: FDA-Public Use
  Company Number: FRWYE802106JUN07

PATIENT
  Age: 73 Year
  Sex: Male

DRUGS (5)
  1. TAZOCILLINE [Suspect]
     Dosage: DOSE UNKNOWN; UNSPECIFIED NUMBER OF DOSES INCLUDED 1 DOSE AT 2 PM AND 1 IN THE EVENING
     Route: 042
     Dates: start: 20070112, end: 20070219
  2. NOVONORM [Concomitant]
     Dosage: UNKNOWN
     Route: 048
  3. SOTALOL HYDROCHLORIDE [Concomitant]
     Dosage: UNKNOWN
     Route: 048
  4. FUMAFER [Concomitant]
     Dosage: UNKNOWN
     Route: 048
  5. STILNOX [Concomitant]
     Dosage: UNKNOWN
     Route: 048

REACTIONS (5)
  - CYTOLYTIC HEPATITIS [None]
  - GAMMA-GLUTAMYLTRANSFERASE INCREASED [None]
  - HYPERSENSITIVITY [None]
  - PRURITUS [None]
  - RASH MORBILLIFORM [None]
